FAERS Safety Report 6229008-0 (Version None)
Quarter: 2009Q2

REPORT INFORMATION
  Report Type: 
  Country: None (occurrence: None)
  Receive Date: 20090615
  Receipt Date: 20090605
  Transmission Date: 20091009
  Serious: Yes (Other)
  Sender: FDA-Public Use
  Company Number: US-CELGENEUS-163-21880-09060510

PATIENT
  Sex: Male
  Weight: 95.9 kg

DRUGS (4)
  1. REVLIMID [Suspect]
     Route: 048
     Dates: start: 20081229, end: 20090521
  2. MELPHALAN [Suspect]
     Route: 048
     Dates: start: 20081229, end: 20090504
  3. PREDNISONE [Suspect]
     Route: 048
     Dates: start: 20081229, end: 20090504
  4. ASPIRIN [Concomitant]
     Indication: DRUG USE FOR UNKNOWN INDICATION
     Route: 048
     Dates: start: 20081229

REACTIONS (2)
  - ALOPECIA [None]
  - NEUTROPHIL COUNT DECREASED [None]
